FAERS Safety Report 24827626 (Version 1)
Quarter: 2025Q1

REPORT INFORMATION
  Report Type: Spontaneous
  Country: FR (occurrence: FR)
  Receive Date: 20250109
  Receipt Date: 20250109
  Transmission Date: 20250409
  Serious: Yes (Other)
  Sender: MYLAN
  Company Number: None

PATIENT
  Age: 70 Year
  Sex: Female
  Weight: 90 kg

DRUGS (17)
  1. MIANSERIN [Interacting]
     Active Substance: MIANSERIN
     Indication: Flat affect
     Dosage: 30 MILLIGRAM, QD (30MG IN THE EVENING)
     Route: 048
     Dates: start: 20231016, end: 20240719
  2. MIANSERIN [Interacting]
     Active Substance: MIANSERIN
     Dosage: 10 MILLIGRAM, QD (10MG IN THE EVENING)
     Route: 048
     Dates: start: 20240719
  3. METOCLOPRAMIDE [Interacting]
     Active Substance: METOCLOPRAMIDE
     Indication: Prophylaxis of nausea and vomiting
     Route: 048
     Dates: start: 20240628, end: 20240719
  4. POSACONAZOLE [Interacting]
     Active Substance: POSACONAZOLE
     Indication: Antifungal prophylaxis
     Route: 048
     Dates: start: 20240615, end: 20240719
  5. ONDANSETRON HYDROCHLORIDE [Interacting]
     Active Substance: ONDANSETRON HYDROCHLORIDE
     Indication: Prophylaxis of nausea and vomiting
     Dosage: 8 MILLIGRAM, BID (8MG 2 TIMES A DAY IF NAUSEA OR VOMITING)
     Route: 048
     Dates: start: 20240629, end: 20240719
  6. ONDANSETRON HYDROCHLORIDE [Interacting]
     Active Substance: ONDANSETRON HYDROCHLORIDE
     Indication: Prophylaxis of nausea and vomiting
     Route: 042
     Dates: start: 20240612, end: 20240628
  7. BACTRIM [Interacting]
     Active Substance: SULFAMETHOXAZOLE\TRIMETHOPRIM
     Indication: Antibiotic prophylaxis
     Route: 048
     Dates: start: 20240626
  8. CYCLOSPORINE [Interacting]
     Active Substance: CYCLOSPORINE
     Indication: Prophylaxis against transplant rejection
     Dosage: 200 MILLIGRAM, BID (400 MILLIGRAM, QD) (200 MG MORNING AND EVENING)
     Route: 048
     Dates: start: 20240627, end: 20240719
  9. CYCLOSPORINE [Interacting]
     Active Substance: CYCLOSPORINE
     Dosage: 150 MILLIGRAM, BID (300 MILLIGRAM, QD) (150 MG MORNING AND EVENING)
     Route: 048
     Dates: start: 20240719
  10. CYCLOSPORINE [Interacting]
     Active Substance: CYCLOSPORINE
     Indication: Prophylaxis against transplant rejection
     Dosage: 145 MILLIGRAM, BID (290 MILLIGRAM, QD) (145MG INTRAVENOUS ELECTRIC SYRINGE PER 12H)
     Route: 042
     Dates: start: 20240612, end: 20240624
  11. CYCLOSPORINE [Interacting]
     Active Substance: CYCLOSPORINE
     Dosage: 130 MILLIGRAM, BID (260 MILLIGRAM, QD) (130 MG INTRAVENOUS ELECTRIC SYRINGE PER 12H)
     Route: 042
     Dates: start: 20240624, end: 20240627
  12. MYCOPHENOLATE MOFETIL HYDROCHLORIDE [Concomitant]
     Active Substance: MYCOPHENOLATE MOFETIL HYDROCHLORIDE
     Indication: Prophylaxis against transplant rejection
     Dosage: 3000 MILLIGRAM, QD (500MG, 2 TABS EVERY 8H)
     Route: 048
     Dates: start: 20240615, end: 20240724
  13. VALACYCLOVIR HYDROCHLORIDE [Concomitant]
     Active Substance: VALACYCLOVIR HYDROCHLORIDE
     Indication: Antiviral prophylaxis
     Dosage: 500 MILLIGRAM, BID (1000 MILLIGRAM, QD) (500MG MORNING AND EVENING)
     Route: 048
     Dates: start: 20240315
  14. LETERMOVIR [Concomitant]
     Active Substance: LETERMOVIR
     Indication: Antiviral prophylaxis
     Dosage: 240 MILLIGRAM, QD (240MG IN THE MORNING)
     Route: 048
     Dates: start: 20240614
  15. URSODIOL [Concomitant]
     Active Substance: URSODIOL
     Indication: Venoocclusive liver disease
     Dosage: 250 MILLIGRAM, TID (750 MILLIGRAM, QD) (250MG MORNING NOON AND EVENING)
     Route: 048
     Dates: start: 20240607
  16. PRAVASTATIN SODIUM [Concomitant]
     Active Substance: PRAVASTATIN SODIUM
     Indication: Venoocclusive liver disease
     Dosage: 20 MILLIGRAM, QD (20MG PER DAY)
     Route: 048
     Dates: start: 20240607
  17. ELIQUIS [Concomitant]
     Active Substance: APIXABAN
     Indication: Pulmonary embolism
     Dosage: 5 MILLIGRAM, BID (10 MILLIGRAM, QD) (5 MILLIGRAM MORNING AND EVENING)
     Route: 048
     Dates: start: 202403

REACTIONS (2)
  - Electrocardiogram QT prolonged [Not Recovered/Not Resolved]
  - Drug interaction [Unknown]

NARRATIVE: CASE EVENT DATE: 20240718
